FAERS Safety Report 24231904 (Version 1)
Quarter: 2024Q3

REPORT INFORMATION
  Report Type: Report from Study
  Country: US (occurrence: US)
  Receive Date: 20240821
  Receipt Date: 20240821
  Transmission Date: 20241016
  Serious: Yes (Hospitalization, Other)
  Sender: ROCHE
  Company Number: US-ROCHE-10000057957

PATIENT
  Age: 50 Year
  Sex: Female
  Weight: 86.18 kg

DRUGS (8)
  1. OCREVUS [Suspect]
     Active Substance: OCRELIZUMAB
     Indication: Relapsing-remitting multiple sclerosis
     Dosage: 300 MG SINGLE-USE VIAL
     Route: 042
     Dates: start: 2022
  2. INSULIN NOS [Concomitant]
     Active Substance: INSULIN NOS
     Indication: Diabetes mellitus
     Route: 058
     Dates: start: 2021
  3. RANEXA [Concomitant]
     Active Substance: RANOLAZINE
     Indication: Hypertension
     Route: 048
  4. RYBELSUS [Concomitant]
     Active Substance: SEMAGLUTIDE
  5. METOPROLOL [Concomitant]
     Active Substance: METOPROLOL
  6. CLONIDINE [Concomitant]
     Active Substance: CLONIDINE
  7. KERENDIA [Concomitant]
     Active Substance: FINERENONE
  8. GABAPENTIN [Concomitant]
     Active Substance: GABAPENTIN

REACTIONS (6)
  - Sepsis [Recovered/Resolved]
  - Urinary tract infection [Recovered/Resolved]
  - Hemiparesis [Not Recovered/Not Resolved]
  - Renal injury [Not Recovered/Not Resolved]
  - Urinary tract disorder [Not Recovered/Not Resolved]
  - Urinary incontinence [Not Recovered/Not Resolved]

NARRATIVE: CASE EVENT DATE: 20230101
